FAERS Safety Report 23714484 (Version 1)
Quarter: 2024Q2

REPORT INFORMATION
  Report Type: Spontaneous
  Country: KR (occurrence: KR)
  Receive Date: 20240406
  Receipt Date: 20240406
  Transmission Date: 20240716
  Serious: Yes (Hospitalization, Other)
  Sender: FDA-Public Use
  Company Number: KR-MSNLABS-2024MSNLIT00757

PATIENT

DRUGS (3)
  1. PREGABALIN [Suspect]
     Active Substance: PREGABALIN
     Indication: Uraemic pruritus
     Dosage: 50MG ONCE DAILY, ADDED 75MG OF PREGABALIN TO HIS DAILY DOSE, FOR A TOTAL OF 125 MG PER DAY
     Route: 065
  2. PREGABALIN [Suspect]
     Active Substance: PREGABALIN
     Dosage: 50MG ONCE DAILY, ADDED 75MG OF PREGABALIN TO HIS DAILY DOSE, FOR A TOTAL OF 125 MG PER DAY
     Route: 065
  3. ROSUVASTATIN [Concomitant]
     Active Substance: ROSUVASTATIN
     Indication: Product used for unknown indication
     Route: 065

REACTIONS (1)
  - Rhabdomyolysis [Recovered/Resolved]
